FAERS Safety Report 4505159-3 (Version None)
Quarter: 2004Q4

REPORT INFORMATION
  Report Type: 
  Country: None (occurrence: None)
  Receive Date: 20041117
  Receipt Date: 20041117
  Transmission Date: 20050328
  Serious: Yes (Hospitalization)
  Sender: FDA-Public Use
  Company Number: None

PATIENT
  Age: 77 Year
  Sex: Male

DRUGS (9)
  1. WARFARIN [Suspect]
     Indication: ATRIAL FIBRILLATION
     Dosage: 7.5 MG QD
     Dates: start: 20040621
  2. LORATADINE [Concomitant]
  3. SALSALATE [Concomitant]
  4. FOSINOPRIL SODIUM [Concomitant]
  5. FUROSEMIDE [Concomitant]
  6. RANITIDINE [Concomitant]
  7. DILTIAZEM [Concomitant]
  8. DIGOXIN [Concomitant]
  9. AMIODARONE [Concomitant]

REACTIONS (1)
  - NO ADVERSE DRUG EFFECT [None]
